FAERS Safety Report 14693912 (Version 1)
Quarter: 2018Q1

REPORT INFORMATION
  Report Type: Spontaneous
  Country: CN (occurrence: CN)
  Receive Date: 20180329
  Receipt Date: 20180329
  Transmission Date: 20180509
  Serious: Yes (Other)
  Sender: FDA-Public Use
  Company Number: CN-JNJFOC-20180333087

PATIENT
  Age: 63 Year
  Sex: Male
  Weight: 60 kg

DRUGS (1)
  1. SPORANOX [Suspect]
     Active Substance: ITRACONAZOLE
     Indication: ABSCESS
     Route: 041
     Dates: start: 20171102, end: 20171110

REACTIONS (2)
  - Pleural effusion [Recovering/Resolving]
  - Dyspnoea paroxysmal nocturnal [Recovered/Resolved]

NARRATIVE: CASE EVENT DATE: 20171108
